FAERS Safety Report 13557669 (Version 2)
Quarter: 2017Q2

REPORT INFORMATION
  Report Type: Spontaneous
  Country: US (occurrence: US)
  Receive Date: 20170518
  Receipt Date: 20170615
  Transmission Date: 20170830
  Serious: Yes (Hospitalization, Other)
  Sender: FDA-Public Use
  Company Number: US-ROCHE-1935545

PATIENT
  Age: 82 Year
  Sex: Female
  Weight: 49.49 kg

DRUGS (1)
  1. ESBRIET [Suspect]
     Active Substance: PIRFENIDONE
     Indication: IDIOPATHIC PULMONARY FIBROSIS
     Dosage: TAKE 1 CAPS BY MOUTH 3 TIMES DAILY FOR 1 WEEK, THE
     Route: 048
     Dates: start: 20170117, end: 20170405

REACTIONS (5)
  - Mouth ulceration [Recovered/Resolved]
  - Lip blister [Unknown]
  - Tongue blistering [Recovered/Resolved]
  - Dehydration [Recovered/Resolved]
  - Swollen tongue [Recovered/Resolved]

NARRATIVE: CASE EVENT DATE: 20170407
